FAERS Safety Report 4995117-7 (Version None)
Quarter: 2006Q2

REPORT INFORMATION
  Report Type: 
  Country: None (occurrence: None)
  Receive Date: 20060508
  Receipt Date: 20050421
  Transmission Date: 20061013
  Serious: Yes (Hospitalization, Disabling)
  Sender: FDA-Public Use
  Company Number: US-MERCK-0504USA04233

PATIENT
  Age: 78 Year
  Sex: Male
  Weight: 115 kg

DRUGS (1)
  1. VIOXX [Suspect]
     Indication: ARTHRALGIA
     Route: 048
     Dates: start: 20000601, end: 20041010

REACTIONS (22)
  - ACUTE MYOCARDIAL INFARCTION [None]
  - ARTERIAL OCCLUSIVE DISEASE [None]
  - BILE DUCT STONE [None]
  - CARDIAC FAILURE CONGESTIVE [None]
  - CARDIOMEGALY [None]
  - CARDIOVASCULAR DECONDITIONING [None]
  - CELLULITIS [None]
  - CEREBROVASCULAR ACCIDENT [None]
  - CHOLECYSTITIS CHRONIC [None]
  - CORONARY ARTERY DISEASE [None]
  - CYANOSIS [None]
  - HYPOKALAEMIA [None]
  - JAUNDICE CHOLESTATIC [None]
  - KNEE ARTHROPLASTY [None]
  - MYOCARDIAL ISCHAEMIA [None]
  - OSTEONECROSIS [None]
  - PERICARDITIS [None]
  - RENAL FAILURE [None]
  - SEPSIS [None]
  - SINUSITIS [None]
  - URINARY TRACT INFECTION [None]
  - WOUND DEHISCENCE [None]
